FAERS Safety Report 7385371 (Version 3)
Quarter: 2013Q1

REPORT INFORMATION
  Report Type: Spontaneous
  Country: US (occurrence: US)
  Receive Date: 20100512
  Receipt Date: 20130125
  Transmission Date: 20140127
  Serious: Yes (Life-Threatening, Hospitalization, Other)
  Sender: FDA-Public Use
  Company Number: US-ELI_LILLY_AND_COMPANY-US201005000620

PATIENT
  Sex: Male

DRUGS (12)
  1. BYETTA [Suspect]
     Dosage: 5 DF, UNK
     Dates: start: 200507
  2. BYETTA [Suspect]
     Dosage: 10 UG, BID
     Dates: end: 200807
  3. METFORMIN [Concomitant]
     Dosage: 2 G, UNK
  4. GEMFIBROZIL [Concomitant]
  5. ALTACE [Concomitant]
  6. AVANDIA [Concomitant]
  7. LIPITOR [Concomitant]
  8. ASPIRIN                                 /USA/ [Concomitant]
  9. LANTUS [Concomitant]
  10. NOVOLOG [Concomitant]
  11. HYDROCHLOROTHIAZIDE [Concomitant]
  12. MULTIVITAMINS [Concomitant]

REACTIONS (3)
  - Cardiac arrest [Recovered/Resolved]
  - Pancreatitis [Unknown]
  - Renal failure acute [Unknown]
